FAERS Safety Report 4520928-1 (Version None)
Quarter: 2004Q4

REPORT INFORMATION
  Report Type: 
  Country: None (occurrence: None)
  Receive Date: 20041206
  Receipt Date: 20041122
  Transmission Date: 20050328
  Serious: Yes (Hospitalization)
  Sender: FDA-Public Use
  Company Number: 2004AL001602

PATIENT
  Age: 42 Year
  Sex: Male

DRUGS (5)
  1. MORPHINE SULFATE [Suspect]
     Dosage: 30 MG; QD; PO
     Route: 048
  2. AMOXICILLIN TRIHYDRATE [Suspect]
     Dosage: 3 GM; QD; PO
     Route: 048
     Dates: start: 20040209
  3. AMITRIPTYLINE HCL [Suspect]
     Dosage: 75 MG; PO
     Route: 048
     Dates: start: 20021215
  4. LORAZEPAM [Suspect]
     Dosage: 1 MG; PO
     Route: 048
     Dates: start: 20030101
  5. OMEPRAZOLE [Suspect]
     Dosage: 20 MG; PO
     Route: 048

REACTIONS (4)
  - ERYTHEMA [None]
  - LYMPHADENOPATHY [None]
  - PRURIGO [None]
  - RASH [None]
